FAERS Safety Report 17271212 (Version 4)
Quarter: 2020Q2

REPORT INFORMATION
  Report Type: Spontaneous
  Country: US (occurrence: US)
  Receive Date: 20200115
  Receipt Date: 20200624
  Transmission Date: 20200713
  Serious: No
  Sender: FDA-Public Use
  Company Number: US-BIOGEN-2020BI00826916

PATIENT
  Sex: Female

DRUGS (3)
  1. TECFIDERA [Suspect]
     Active Substance: DIMETHYL FUMARATE
     Route: 048
     Dates: start: 201912
  2. TECFIDERA [Suspect]
     Active Substance: DIMETHYL FUMARATE
     Route: 048
     Dates: start: 202001
  3. TECFIDERA [Suspect]
     Active Substance: DIMETHYL FUMARATE
     Indication: MULTIPLE SCLEROSIS
     Route: 048
     Dates: start: 201912

REACTIONS (7)
  - Diarrhoea [Unknown]
  - Multiple sclerosis [Unknown]
  - Hot flush [Recovered/Resolved]
  - Abdominal discomfort [Unknown]
  - Gastrointestinal disorder [Recovered/Resolved]
  - Defaecation urgency [Unknown]
  - Abdominal pain upper [Unknown]
